FAERS Safety Report 5265596-9 (Version None)
Quarter: 2007Q1

REPORT INFORMATION
  Report Type: 
  Country: None (occurrence: None)
  Receive Date: 20061213
  Receipt Date: 20030204
  Transmission Date: 20070707
  Serious: Yes (Death)
  Sender: FDA-Public Use
  Company Number: 2002UW14604

PATIENT
  Age: 80 Year
  Sex: Female

DRUGS (1)
  1. NOLVADEX [Suspect]

REACTIONS (2)
  - BREAST CANCER [None]
  - MYELOID LEUKAEMIA [None]
